FAERS Safety Report 7095755-4 (Version None)
Quarter: 2010Q4

REPORT INFORMATION
  Report Type: 
  Country: None (occurrence: None)
  Receive Date: 20101109
  Receipt Date: 20101109
  Transmission Date: 20110411
  Serious: No
  Sender: FDA-Public Use
  Company Number: None

PATIENT
  Age: 69 Year
  Sex: Male

DRUGS (1)
  1. OMEPRAZOLE [Suspect]
     Dosage: 20 MG EVERY DAY PO
     Route: 048
     Dates: start: 20041203, end: 20100521

REACTIONS (2)
  - NEPHRITIS [None]
  - RENAL IMPAIRMENT [None]
